FAERS Safety Report 5930438-2 (Version None)
Quarter: 2008Q4

REPORT INFORMATION
  Report Type: 
  Country: None (occurrence: None)
  Receive Date: 20081022
  Receipt Date: 20081015
  Transmission Date: 20090506
  Serious: Yes (Other)
  Sender: FDA-Public Use
  Company Number: 2008BI022335

PATIENT
  Age: 48 Year
  Sex: Male
  Weight: 83.9154 kg

DRUGS (4)
  1. AVONEX [Suspect]
     Dosage: 30 UG;QW;IM
     Route: 030
     Dates: start: 19960101, end: 20030101
  2. AVONEX [Suspect]
     Dosage: 30 UG;QW;IM
     Route: 030
     Dates: start: 20030101
  3. . [Concomitant]
  4. . [Concomitant]

REACTIONS (4)
  - BONE DISORDER [None]
  - BONE NEOPLASM MALIGNANT [None]
  - LYMPHOMA [None]
  - MULTIPLE SCLEROSIS RELAPSE [None]
